FAERS Safety Report 6653686-5 (Version None)
Quarter: 2010Q1

REPORT INFORMATION
  Report Type: 
  Country: None (occurrence: None)
  Receive Date: 20100324
  Receipt Date: 20100311
  Transmission Date: 20100710
  Serious: Yes (Congenital Anomaly)
  Sender: FDA-Public Use
  Company Number: 2010AL001564

PATIENT
  Age: 20 Week

DRUGS (3)
  1. GABAPENTIN [Suspect]
     Indication: DRUG EXPOSURE DURING PREGNANCY
     Dosage: 1200 MG;BID;TRPL
     Route: 064
  2. LAMOTRIGINE [Concomitant]
  3. KEPPRA [Concomitant]

REACTIONS (2)
  - MATERNAL DRUGS AFFECTING FOETUS [None]
  - TALIPES [None]
